FAERS Safety Report 8237028-X (Version None)
Quarter: 2012Q1

REPORT INFORMATION
  Report Type: 
  Country: None (occurrence: None)
  Receive Date: 20120326
  Receipt Date: 20120326
  Transmission Date: 20120608
  Serious: Yes (Disabling)
  Sender: FDA-Public Use
  Company Number: None

PATIENT
  Age: 68 Year
  Sex: Female
  Weight: 78.9259 kg

DRUGS (4)
  1. CLARITHROMYCIN [Suspect]
     Indication: DYSPNOEA
     Dosage: 1ST DAY 2 DA 3DA-6 DAYS 6-5-4-3-2-1 UNTIL GONE
     Dates: start: 20111004, end: 20111010
  2. CLARITHROMYCIN [Suspect]
     Indication: BALANCE DISORDER
     Dosage: 1ST DAY 2 DA 3DA-6 DAYS 6-5-4-3-2-1 UNTIL GONE
     Dates: start: 20111004, end: 20111010
  3. CLARITHROMYCIN [Suspect]
     Indication: HEADACHE
     Dosage: 1ST DAY 2 DA 3DA-6 DAYS 6-5-4-3-2-1 UNTIL GONE
     Dates: start: 20111004, end: 20111010
  4. CLARITHROMYCIN [Suspect]
     Indication: DIZZINESS
     Dosage: 1ST DAY 2 DA 3DA-6 DAYS 6-5-4-3-2-1 UNTIL GONE
     Dates: start: 20111004, end: 20111010

REACTIONS (5)
  - OCULAR HYPERAEMIA [None]
  - GLOSSITIS [None]
  - EATING DISORDER [None]
  - DYSPNOEA [None]
  - CANDIDIASIS [None]
